FAERS Safety Report 12969140 (Version 1)
Quarter: 2016Q4

REPORT INFORMATION
  Report Type: Spontaneous
  Country: FR (occurrence: FR)
  Receive Date: 20161123
  Receipt Date: 20161123
  Transmission Date: 20170207
  Serious: Yes (Hospitalization)
  Sender: FDA-Public Use
  Company Number: FR-009507513-1611FRA008828

PATIENT
  Age: 94 Year
  Sex: Male

DRUGS (8)
  1. SEROPLEX [Concomitant]
     Active Substance: ESCITALOPRAM OXALATE
     Dosage: 1 TABLET, QD
     Route: 048
  2. BYDUREON [Concomitant]
     Active Substance: EXENATIDE
     Dosage: 1 DF, QD (ALSO REPORTED AS 2 MG WEEKLY)
     Route: 058
  3. PERINDOPRIL [Concomitant]
     Active Substance: PERINDOPRIL
     Dosage: 1 DF, QD (ALSO REPORTED AS 4 TABLET IN THE MORNING)
     Route: 048
  4. INVANZ [Suspect]
     Active Substance: ERTAPENEM SODIUM
     Indication: KLEBSIELLA BACTERAEMIA
     Dosage: 1 INJECTION IN THE EVENING, QPM; FORMULATION: POWDER FOR SOLUTION TO DILUATE FOR INFUSION
     Route: 058
     Dates: start: 20160929, end: 20161003
  5. BURINEX [Concomitant]
     Active Substance: BUMETANIDE
     Dosage: 0.5 TABLET IN THE MORNING, QAM
     Route: 048
  6. CARDENSIEL [Concomitant]
     Active Substance: BISOPROLOL FUMARATE
     Dosage: 1 TABLET IN THE MORNING, QAM; FORMULATION: FILM-COATED SCORED TABLET
     Route: 048
  7. CALCIPARINE [Concomitant]
     Active Substance: HEPARIN CALCIUM
     Dosage: 0.2 IU (ALSO REPORTED AS UI), MORNING AND EVENING; STRENGTH: 5000/0.2 IU/ML
     Route: 058
  8. ACETAMINOPHEN. [Concomitant]
     Active Substance: ACETAMINOPHEN
     Dosage: 1 G IN THE MORNING, AT NOON AND EVENING IN CASE OF PAIN AND/OR FEVER
     Route: 048

REACTIONS (4)
  - Agitation [Recovered/Resolved]
  - Disorientation [Recovered/Resolved]
  - Hallucination, visual [Recovered/Resolved]
  - Confusional state [Recovered/Resolved]

NARRATIVE: CASE EVENT DATE: 20161003
